FAERS Safety Report 5808890-2 (Version None)
Quarter: 2008Q3

REPORT INFORMATION
  Report Type: 
  Country: None (occurrence: None)
  Receive Date: 20080714
  Receipt Date: 20080701
  Transmission Date: 20090109
  Serious: Yes (Disabling)
  Sender: FDA-Public Use
  Company Number: US-MERCK-0705USA01331

PATIENT
  Age: 58 Year
  Sex: Male

DRUGS (5)
  1. FOSAMAX [Suspect]
     Indication: OSTEOPOROSIS
     Route: 048
     Dates: start: 20010401, end: 20020501
  2. FOSAMAX [Suspect]
     Route: 048
     Dates: start: 20030101, end: 20050101
  3. FOSAMAX [Suspect]
     Route: 048
     Dates: start: 20010301, end: 20010401
  4. FOSAMAX [Suspect]
     Route: 048
     Dates: start: 20020601
  5. SYNTHROID [Concomitant]
     Indication: PARATHYROID DISORDER
     Route: 065
     Dates: start: 19800101

REACTIONS (12)
  - BURSITIS [None]
  - GASTROINTESTINAL HAEMORRHAGE [None]
  - GINGIVAL DISORDER [None]
  - IMPETIGO [None]
  - IRON DEFICIENCY ANAEMIA [None]
  - JOINT CREPITATION [None]
  - OSTEONECROSIS [None]
  - RASH [None]
  - RESORPTION BONE INCREASED [None]
  - SPINAL COLUMN STENOSIS [None]
  - TOOTH LOSS [None]
  - VERTEBRAL INJURY [None]
